FAERS Safety Report 10928683 (Version 1)
Quarter: 2015Q1

REPORT INFORMATION
  Report Type: Spontaneous
  Country: US (occurrence: None)
  Receive Date: 20150129
  Receipt Date: 20150129
  Transmission Date: 20150721
  Serious: Yes (Hospitalization)
  Sender: FDA-Public Use
  Company Number: A-US2014-105567

PATIENT
  Age: 74 Year
  Sex: Male

DRUGS (2)
  1. OPSUMIT [Suspect]
     Active Substance: MACITENTAN
     Indication: PULMONARY ARTERIAL HYPERTENSION
     Route: 048
     Dates: start: 20140925
  2. RIOCIGUAT [Concomitant]
     Active Substance: RIOCIGUAT

REACTIONS (7)
  - Retching [None]
  - Fluid retention [None]
  - Oedema [None]
  - Pallor [None]
  - Dyspnoea [None]
  - Weight increased [None]
  - Nausea [None]

NARRATIVE: CASE EVENT DATE: 20141001
